FAERS Safety Report 4954553-5 (Version None)
Quarter: 2006Q1

REPORT INFORMATION
  Report Type: 
  Country: None (occurrence: None)
  Receive Date: 20060322
  Receipt Date: 20060308
  Transmission Date: 20060701
  Serious: Yes (Other)
  Sender: FDA-Public Use
  Company Number: 2006RR01778

PATIENT
  Age: 71 Year
  Sex: Female

DRUGS (6)
  1. AMOXICILLIN [Suspect]
     Dosage: 500 MG, SINGLE,  ORAL
     Route: 048
     Dates: start: 20060216, end: 20060216
  2. SALBUTAMOL (SALBUTAMOL) [Concomitant]
  3. ATROVENT [Concomitant]
  4. PREDNISOLONE [Concomitant]
  5. RAMIPRIL CAPSULES (RAMIPRIL) [Concomitant]
  6. BENDROFLUAZIDE [Concomitant]

REACTIONS (1)
  - ANAPHYLACTIC REACTION [None]
